FAERS Safety Report 9021272 (Version 1)
Quarter: 2013Q1

REPORT INFORMATION
  Report Type: Spontaneous
  Country: None (occurrence: US)
  Receive Date: 20130119
  Receipt Date: 20130119
  Transmission Date: 20140127
  Serious: No
  Sender: FDA-Public Use
  Company Number: US-ALLERGAN-1202990US

PATIENT
  Sex: Male

DRUGS (1)
  1. BOTOX COSMETIC [Suspect]
     Indication: PRODUCT USED FOR UNKNOWN INDICATION
     Dosage: 5 UNITS, SINGLE
     Route: 030
     Dates: start: 20120301, end: 20120301

REACTIONS (3)
  - Wrong technique in drug usage process [Unknown]
  - Lacrimation increased [Unknown]
  - Injection site pain [Unknown]
